FAERS Safety Report 18953202 (Version 1)
Quarter: 2021Q1

REPORT INFORMATION
  Report Type: Spontaneous
  Country: US (occurrence: US)
  Receive Date: 20210227
  Receipt Date: 20210227
  Transmission Date: 20210420
  Serious: No
  Sender: FDA-Public Use
  Company Number: None

PATIENT
  Age: 64 Year
  Sex: Female
  Weight: 133.65 kg

DRUGS (14)
  1. L?THYROXINE [Concomitant]
     Active Substance: LEVOTHYROXINE
  2. AMLODIPINE [Concomitant]
     Active Substance: AMLODIPINE BESYLATE
  3. METOPROLOL. [Concomitant]
     Active Substance: METOPROLOL
  4. VITAMIN D3 [Concomitant]
     Active Substance: CHOLECALCIFEROL
  5. LEVETIRACETAM. [Concomitant]
     Active Substance: LEVETIRACETAM
  6. FUROSEMIDE. [Concomitant]
     Active Substance: FUROSEMIDE
  7. CPAP [Concomitant]
     Active Substance: DEVICE
  8. LOSARTAN. [Concomitant]
     Active Substance: LOSARTAN
  9. MELOXICAM. [Concomitant]
     Active Substance: MELOXICAM
  10. AZO [Concomitant]
     Active Substance: PHENAZOPYRIDINE HYDROCHLORIDE
  11. MELATONIN [Concomitant]
     Active Substance: MELATONIN
  12. FLUOXETINE [Concomitant]
     Active Substance: FLUOXETINE HYDROCHLORIDE
  13. ATORVASTATIN TABS GENERIC FOR LIPITOR TABS [Suspect]
     Active Substance: ATORVASTATIN
     Indication: BLOOD CHOLESTEROL INCREASED
     Dosage: ?          QUANTITY:1 TABLET(S);?
     Route: 048
     Dates: end: 20210130
  14. VITAMIN B COMPLEX [Concomitant]
     Active Substance: CYANOCOBALAMIN\DEXPANTHENOL\NIACINAMIDE\PYRIDOXINE HYDROCHLORIDE\RIBOFLAVIN 5^-PHOSPHATE SODIUM\THIAMINE HYDROCHLORIDE\VITAMIN B COMPLEX

REACTIONS (3)
  - Depression [None]
  - Migraine [None]
  - Anger [None]
